FAERS Safety Report 6395340-3 (Version None)
Quarter: 2009Q4

REPORT INFORMATION
  Report Type: 
  Country: None (occurrence: None)
  Receive Date: 20091009
  Receipt Date: 20091002
  Transmission Date: 20100525
  Serious: Yes (Life-Threatening, Hospitalization)
  Sender: FDA-Public Use
  Company Number: B0597033A

PATIENT
  Sex: Male

DRUGS (2)
  1. CARVEDILOL [Suspect]
     Dates: start: 20090813, end: 20090924
  2. BLINDED TRIAL MEDICATION [Suspect]
     Indication: CORONARY ARTERY DISEASE
     Route: 048
     Dates: start: 20090810

REACTIONS (3)
  - CHEST PAIN [None]
  - LOSS OF CONSCIOUSNESS [None]
  - PRINZMETAL ANGINA [None]
